FAERS Safety Report 7988420-X (Version None)
Quarter: 2011Q4

REPORT INFORMATION
  Report Type: 
  Country: None (occurrence: None)
  Receive Date: 20111216
  Receipt Date: 20111207
  Transmission Date: 20120403
  Serious: Yes (Other)
  Sender: FDA-Public Use
  Company Number: US-ALLERGAN-1116341US

PATIENT
  Age: 54 Year
  Sex: Female

DRUGS (1)
  1. BOTOX COSMETIC [Suspect]
     Indication: SKIN WRINKLING
     Dosage: 25 UNITS, SINGLE
     Route: 030
     Dates: start: 20111020, end: 20111020

REACTIONS (6)
  - PHARYNGEAL OEDEMA [None]
  - HYPERSENSITIVITY [None]
  - DYSARTHRIA [None]
  - FLUSHING [None]
  - LOSS OF CONSCIOUSNESS [None]
  - BLOOD PRESSURE DECREASED [None]
